FAERS Safety Report 6217535-1 (Version None)
Quarter: 2009Q2

REPORT INFORMATION
  Report Type: 
  Country: None (occurrence: None)
  Receive Date: 20090608
  Receipt Date: 20090128
  Transmission Date: 20091009
  Serious: No
  Sender: FDA-Public Use
  Company Number: A0765674A

PATIENT
  Age: 49 Year
  Sex: Female

DRUGS (1)
  1. WELLBUTRIN XL [Suspect]
     Indication: DRUG USE FOR UNKNOWN INDICATION
     Dosage: 150MG UNKNOWN
     Route: 048

REACTIONS (1)
  - HYPERTENSION [None]
